FAERS Safety Report 6947225-9 (Version None)
Quarter: 2010Q3

REPORT INFORMATION
  Report Type: 
  Country: None (occurrence: None)
  Receive Date: 20100825
  Receipt Date: 20100811
  Transmission Date: 20110219
  Serious: Yes (Hospitalization)
  Sender: FDA-Public Use
  Company Number: CIP10001930

PATIENT
  Age: 23 Year
  Sex: Male

DRUGS (1)
  1. ASACOL [Suspect]
     Indication: COLITIS ULCERATIVE
     Dosage: 4.5 GRAMS DAILY, ORAL,3G/D ORAL, 250MG, ORAL
     Route: 048

REACTIONS (8)
  - C-REACTIVE PROTEIN INCREASED [None]
  - HYPERPLASIA [None]
  - IRON DEFICIENCY ANAEMIA [None]
  - LYMPHADENOPATHY [None]
  - MYALGIA [None]
  - PERICARDIAL EFFUSION [None]
  - PYREXIA [None]
  - RED BLOOD CELL SEDIMENTATION RATE INCREASED [None]
